FAERS Safety Report 4295323-3 (Version None)
Quarter: 2004Q1

REPORT INFORMATION
  Report Type: 
  Country: None (occurrence: None)
  Receive Date: 20040216
  Receipt Date: 20030603
  Transmission Date: 20041129
  Serious: No
  Sender: FDA-Public Use
  Company Number: US-GLAXOSMITHKLINE-A0411041A

PATIENT
  Age: 38 Year
  Sex: Female

DRUGS (3)
  1. LAMICTAL [Suspect]
     Dosage: 225MG PER DAY
     Route: 048
     Dates: start: 20021201
  2. XANAX [Concomitant]
  3. ATIVAN [Concomitant]

REACTIONS (2)
  - MEMORY IMPAIRMENT [None]
  - VISION BLURRED [None]
